FAERS Safety Report 8301549-1 (Version None)
Quarter: 2012Q2

REPORT INFORMATION
  Report Type: 
  Country: None (occurrence: None)
  Receive Date: 20120420
  Receipt Date: 20120418
  Transmission Date: 20120825
  Serious: Yes (Disabling)
  Sender: FDA-Public Use
  Company Number: PHEH2012US003438

PATIENT
  Sex: Female
  Weight: 44.671 kg

DRUGS (1)
  1. RECLAST [Suspect]
     Indication: OSTEOPOROSIS
     Dosage: 5 MG, UNK
     Route: 042
     Dates: start: 20120202

REACTIONS (7)
  - BURNING SENSATION [None]
  - PYREXIA [None]
  - CHILLS [None]
  - PAIN IN EXTREMITY [None]
  - HEADACHE [None]
  - MYALGIA [None]
  - NECK PAIN [None]
